FAERS Safety Report 10071022 (Version 1)
Quarter: 2014Q2

REPORT INFORMATION
  Report Type: Spontaneous
  Country: IT (occurrence: IT)
  Receive Date: 20140410
  Receipt Date: 20140410
  Transmission Date: 20141212
  Serious: Yes (Death)
  Sender: FDA-Public Use
  Company Number: IT-WATSON-2014-06866

PATIENT
  Age: 75 Year
  Sex: Male
  Weight: 78 kg

DRUGS (3)
  1. CARBOPLATIN (UNKNOWN) [Suspect]
     Indication: LUNG NEOPLASM MALIGNANT
     Dosage: 320 MG, CYCLICAL
     Route: 042
     Dates: start: 20140212, end: 20140212
  2. ALIMTA [Suspect]
     Indication: LUNG NEOPLASM MALIGNANT
     Dosage: 500 MG, CYCLICAL (PER SM OF BODY SURFACE)
     Route: 042
     Dates: start: 20140122, end: 20140212
  3. CISPLATIN (UNKNOWN) [Suspect]
     Indication: LUNG NEOPLASM MALIGNANT
     Dosage: UNK
     Route: 065
     Dates: start: 20140122, end: 20140122

REACTIONS (3)
  - Renal failure [Fatal]
  - Hepatic failure [Fatal]
  - Bone marrow toxicity [Fatal]
